FAERS Safety Report 20365428 (Version 1)
Quarter: 2022Q1

REPORT INFORMATION
  Report Type: Spontaneous
  Country: GB (occurrence: GB)
  Receive Date: 20220122
  Receipt Date: 20220122
  Transmission Date: 20220424
  Serious: Yes (Other)
  Sender: FDA-Public Use
  Company Number: None

PATIENT
  Age: 9 Year
  Sex: Male
  Weight: 28.4 kg

DRUGS (1)
  1. ETANERCEPT [Suspect]
     Active Substance: ETANERCEPT
     Indication: Juvenile idiopathic arthritis
     Dosage: 40 MG (WEEKLY)
     Route: 058
     Dates: start: 202111, end: 20220113

REACTIONS (2)
  - Hallucinations, mixed [Unknown]
  - Depressed mood [Unknown]

NARRATIVE: CASE EVENT DATE: 20211101
